FAERS Safety Report 8651863 (Version 3)
Quarter: 2013Q2

REPORT INFORMATION
  Report Type: Report from Study
  Country: GB (occurrence: GB)
  Receive Date: 20120706
  Receipt Date: 20130419
  Transmission Date: 20140414
  Serious: Yes (Death, Hospitalization)
  Sender: FDA-Public Use
  Company Number: GB-ABBOTT-12P-167-0952382-00

PATIENT
  Age: 65 Year
  Sex: Female

DRUGS (8)
  1. HUMIRA 40 MG/ 0.8 ML PRE-FILLED SYRINGE [Suspect]
     Indication: RHEUMATOID ARTHRITIS
     Route: 058
     Dates: start: 20100301
  2. HUMIRA 40 MG/ 0.8 ML PRE-FILLED SYRINGE [Suspect]
     Dates: start: 201204, end: 201205
  3. AZATHIOPRINE [Concomitant]
     Indication: RHEUMATOID ARTHRITIS
     Dates: start: 20060930
  4. PREDNISOLONE [Concomitant]
     Indication: PRODUCT USED FOR UNKNOWN INDICATION
     Route: 048
  5. HYDROCORTISONE [Concomitant]
     Indication: PRODUCT USED FOR UNKNOWN INDICATION
     Route: 042
  6. CO-AMOXICLAV [Concomitant]
     Indication: PRODUCT USED FOR UNKNOWN INDICATION
     Route: 042
  7. METRONIDAZOLE [Concomitant]
     Indication: PRODUCT USED FOR UNKNOWN INDICATION
  8. STEROIDS [Concomitant]
     Indication: RHEUMATOID ARTHRITIS

REACTIONS (20)
  - Multi-organ failure [Fatal]
  - Hypoproteinaemia [Fatal]
  - Malnutrition [Fatal]
  - Rheumatoid arthritis [Fatal]
  - Osteoporosis [Fatal]
  - Respiratory failure [Fatal]
  - Fluid overload [Fatal]
  - Intestinal obstruction [Fatal]
  - Pyrexia [Fatal]
  - Decreased appetite [Fatal]
  - Abdominal pain lower [Fatal]
  - Vomiting [Fatal]
  - Dyspnoea exertional [Fatal]
  - Joint swelling [Fatal]
  - Lower respiratory tract infection [Fatal]
  - Abscess [Fatal]
  - Urinary tract infection [Fatal]
  - Haematoma infection [Fatal]
  - Abdominal infection [Fatal]
  - Pneumonia [Fatal]
